FAERS Safety Report 21019453 (Version 1)
Quarter: 2022Q2

REPORT INFORMATION
  Report Type: Spontaneous
  Country: IT (occurrence: IT)
  Receive Date: 20220628
  Receipt Date: 20220628
  Transmission Date: 20220721
  Serious: No
  Sender: FDA-Public Use
  Company Number: IT-JAZZ-2022-IT-004596

PATIENT
  Sex: Female

DRUGS (5)
  1. XYREM [Suspect]
     Active Substance: SODIUM OXYBATE
     Indication: Product used for unknown indication
     Dosage: 180 MILLILITER (180 MILLILITER, EV 4 WEEKS)
     Route: 048
  2. XYREM [Suspect]
     Active Substance: SODIUM OXYBATE
     Dosage: 3.5 MILLILITER, EVERY 3 HOUR
     Route: 048
  3. XYREM [Suspect]
     Active Substance: SODIUM OXYBATE
     Dosage: 1.5 MILLILITER
     Route: 048
  4. GONADOTROPHIN, CHORIONIC [Concomitant]
     Active Substance: GONADOTROPHIN, CHORIONIC
     Dosage: UNK
  5. VENLAFAXINE HYDROCHLORIDE [Concomitant]
     Active Substance: VENLAFAXINE HYDROCHLORIDE
     Dosage: UNK

REACTIONS (10)
  - Fatigue [Recovering/Resolving]
  - Headache [Recovering/Resolving]
  - Night sweats [Unknown]
  - Dizziness [Recovering/Resolving]
  - Insomnia [Recovering/Resolving]
  - Hyperhidrosis [Recovering/Resolving]
  - Drug tolerance [Unknown]
  - Product use issue [Unknown]
  - Drug ineffective [Unknown]
  - Intentional product use issue [Unknown]
